FAERS Safety Report 14347145 (Version 1)
Quarter: 2018Q1

REPORT INFORMATION
  Report Type: Spontaneous
  Country: CZ (occurrence: CZ)
  Receive Date: 20180103
  Receipt Date: 20180103
  Transmission Date: 20180509
  Serious: Yes (Other)
  Sender: FDA-Public Use
  Company Number: CZ-PFIZER INC-2017552093

PATIENT
  Age: 77 Year
  Sex: Male

DRUGS (11)
  1. CAPECITABINE. [Suspect]
     Active Substance: CAPECITABINE
     Dosage: 4 DF, UNK (TWO TABLETS IN THE MORNING AND TWO TABLETS IN THE EVENING)
     Dates: start: 2009, end: 201403
  2. CAPECITABINE. [Suspect]
     Active Substance: CAPECITABINE
     Dosage: 8 DF, UNK (FOUR TABLETS IN THE MORNING AND FOUR TABLETS IN THE EVENING)
     Dates: start: 2009, end: 2009
  3. OXALIPLATIN. [Suspect]
     Active Substance: OXALIPLATIN
     Indication: COLON CANCER METASTATIC
     Dosage: UNK
     Dates: start: 200806, end: 200811
  4. MICARDIS [Concomitant]
     Active Substance: TELMISARTAN
     Dosage: 80 MG, 1X/DAY
  5. FLUOROURACIL. [Suspect]
     Active Substance: FLUOROURACIL
     Indication: COLON CANCER METASTATIC
     Dosage: UNK
     Dates: start: 200806, end: 2009
  6. BEVACIZUMAB. [Suspect]
     Active Substance: BEVACIZUMAB
     Indication: COLON CANCER METASTATIC
     Dosage: UNK
     Dates: start: 200806, end: 201403
  7. GLUCOPHAGE [Concomitant]
     Active Substance: METFORMIN HYDROCHLORIDE
     Dosage: 500 MG, 1X/DAY
  8. OMNIC TOCAS [Concomitant]
     Dosage: 0.4 MG, 1X/DAY
  9. CAPECITABINE. [Suspect]
     Active Substance: CAPECITABINE
     Indication: COLON CANCER METASTATIC
     Dosage: 6 DF, UNK (THREE TABLETS IN THE MORNING AND THREE TABLETS IN THE EVENING)
     Dates: start: 2009, end: 2009
  10. FOLINIC ACID [Suspect]
     Active Substance: LEUCOVORIN
     Indication: COLON CANCER METASTATIC
     Dosage: UNK
     Dates: start: 200806, end: 2009
  11. RILMENIDINE [Concomitant]
     Active Substance: RILMENIDINE
     Dosage: 1 MG, 1X/DAY

REACTIONS (4)
  - Catheter site erythema [Unknown]
  - Neuropathy peripheral [Unknown]
  - Hypertension [Unknown]
  - Catheter site pain [Unknown]

NARRATIVE: CASE EVENT DATE: 200901
